FAERS Safety Report 12642842 (Version 5)
Quarter: 2016Q4

REPORT INFORMATION
  Report Type: Spontaneous
  Country: US (occurrence: US)
  Receive Date: 20160811
  Receipt Date: 20161216
  Transmission Date: 20170207
  Serious: Yes (Congenital Anomaly, Other)
  Sender: FDA-Public Use
  Company Number: PHHY2015US126946

PATIENT
  Sex: Male

DRUGS (2)
  1. ONDANSETRON DR REDDY [Suspect]
     Active Substance: ONDANSETRON
     Indication: FOETAL EXPOSURE DURING PREGNANCY
     Dosage: MOTHER^S DOSE: 4 MG
     Route: 064
  2. ZOFRAN [Suspect]
     Active Substance: ONDANSETRON HYDROCHLORIDE
     Indication: FOETAL EXPOSURE DURING PREGNANCY
     Route: 064

REACTIONS (18)
  - Double outlet right ventricle [Unknown]
  - Atrial septal defect [Unknown]
  - Pulmonary valve incompetence [Unknown]
  - Right ventricular hypertrophy [Unknown]
  - Gallbladder disorder [Unknown]
  - Bradycardia neonatal [Unknown]
  - Upper respiratory tract infection [Unknown]
  - Ventricular septal defect [Unknown]
  - Phimosis [Unknown]
  - Foetal exposure during pregnancy [Unknown]
  - Cardiac murmur [Unknown]
  - Pulmonary artery stenosis congenital [Unknown]
  - Heart disease congenital [Unknown]
  - Multiple congenital abnormalities [Unknown]
  - Ear pain [Unknown]
  - Cardiomegaly [Unknown]
  - Gastrooesophageal reflux disease [Unknown]
  - Constipation [Unknown]
